FAERS Safety Report 8209582-5 (Version None)
Quarter: 2012Q1

REPORT INFORMATION
  Report Type: 
  Country: None (occurrence: None)
  Receive Date: 20120314
  Receipt Date: 20120308
  Transmission Date: 20120608
  Serious: Yes (Other)
  Sender: FDA-Public Use
  Company Number: JP-PFIZER INC-2012051461

PATIENT
  Sex: Female

DRUGS (2)
  1. LIPITOR [Suspect]
     Dosage: UNK
     Route: 048
  2. LIPITOR [Suspect]
     Dosage: 2.5 MG, DAILY
     Route: 048

REACTIONS (1)
  - AMYLASE INCREASED [None]
